FAERS Safety Report 15996570 (Version 3)
Quarter: 2019Q2

REPORT INFORMATION
  Report Type: Spontaneous
  Country: JP (occurrence: JP)
  Receive Date: 20190222
  Receipt Date: 20190418
  Transmission Date: 20190711
  Serious: Yes (Hospitalization, Other)
  Sender: FDA-Public Use
  Company Number: JP-BRISTOL-MYERS SQUIBB COMPANY-BMS-2018-113599

PATIENT
  Age: 86 Year
  Sex: Female
  Weight: 55 kg

DRUGS (6)
  1. ELIQUIS [Suspect]
     Active Substance: APIXABAN
     Indication: CEREBROVASCULAR ACCIDENT PROPHYLAXIS
     Dosage: 2.5 MG, BID
     Route: 048
     Dates: start: 20170412, end: 20181029
  2. ARICEPT [Suspect]
     Active Substance: DONEPEZIL HYDROCHLORIDE
     Indication: COGNITIVE DISORDER
     Dosage: 1 TAB, UNK
     Route: 065
     Dates: start: 20171206, end: 20171207
  3. ARICEPT [Suspect]
     Active Substance: DONEPEZIL HYDROCHLORIDE
     Indication: PRODUCT USED FOR UNKNOWN INDICATION
     Dosage: 15 MG, UNK
     Route: 065
     Dates: start: 20171219
  4. ARTIST [Suspect]
     Active Substance: CARVEDILOL
     Indication: ATRIAL FIBRILLATION
     Dosage: 1 TAB, QD
     Route: 065
     Dates: start: 20170418, end: 20170426
  5. MAINTATE [Suspect]
     Active Substance: BISOPROLOL FUMARATE
     Indication: HEART RATE INCREASED
     Dosage: 1 TAB, UNK
     Route: 065
     Dates: start: 20170426
  6. ROZEREM [Suspect]
     Active Substance: RAMELTEON
     Indication: INSOMNIA
     Dosage: 1 TAB, UNK
     Route: 065
     Dates: start: 20171206, end: 20171207

REACTIONS (7)
  - Atrial flutter [Recovering/Resolving]
  - Iron deficiency anaemia [Not Recovered/Not Resolved]
  - Heart rate increased [Recovering/Resolving]
  - Atrial fibrillation [Unknown]
  - Dementia [Unknown]
  - Face oedema [Unknown]
  - Liver function test increased [Unknown]

NARRATIVE: CASE EVENT DATE: 20170418
